FAERS Safety Report 4836493-5 (Version None)
Quarter: 2005Q4

REPORT INFORMATION
  Report Type: 
  Country: None (occurrence: None)
  Receive Date: 20051118
  Receipt Date: 20051108
  Transmission Date: 20060501
  Serious: Yes (Death)
  Sender: FDA-Public Use
  Company Number: 2005153492

PATIENT
  Age: 45 Year
  Sex: Female

DRUGS (7)
  1. REVATIO [Suspect]
     Indication: PULMONARY HYPERTENSION
     Dosage: 75 MG (25 MG, 3 IN 1 D), ORAL
     Route: 048
     Dates: start: 20030303, end: 20041107
  2. DORNER (BERAPROST SODIUM) [Concomitant]
  3. LASIX [Concomitant]
  4. ALLOPURINOL [Concomitant]
  5. TAGAMET [Concomitant]
  6. ALDACTONE [Concomitant]
  7. WARFARIN SODIUM [Concomitant]

REACTIONS (1)
  - RIGHT VENTRICULAR FAILURE [None]
